FAERS Safety Report 5735481-4 (Version None)
Quarter: 2008Q2

REPORT INFORMATION
  Report Type: 
  Country: None (occurrence: None)
  Receive Date: 20080508
  Receipt Date: 20080501
  Transmission Date: 20081010
  Serious: Yes (Hospitalization, Other)
  Sender: FDA-Public Use
  Company Number: 2008SP008150

PATIENT
  Age: 41 Year
  Sex: Female
  Weight: 69.1 kg

DRUGS (2)
  1. TEMODAR [Suspect]
     Indication: GLIOBLASTOMA MULTIFORME
     Dosage: 75 MG/M2;QD;PO : 75 MG/M2;QD;PO : 100 MG/M2;QD;PO
     Route: 048
     Dates: start: 20080327, end: 20080416
  2. TEMODAR [Suspect]
     Indication: GLIOBLASTOMA MULTIFORME
     Dosage: 75 MG/M2;QD;PO : 75 MG/M2;QD;PO : 100 MG/M2;QD;PO
     Route: 048
     Dates: start: 20071219

REACTIONS (5)
  - FATIGUE [None]
  - GRAM STAIN POSITIVE [None]
  - LYMPHOPENIA [None]
  - PNEUMONIA [None]
  - SUPRAVENTRICULAR TACHYCARDIA [None]
